FAERS Safety Report 8005183-2 (Version None)
Quarter: 2011Q4

REPORT INFORMATION
  Report Type: 
  Country: None (occurrence: None)
  Receive Date: 20111223
  Receipt Date: 20111219
  Transmission Date: 20120403
  Serious: Yes (Death)
  Sender: FDA-Public Use
  Company Number: PHEH2011US011970

PATIENT
  Sex: Female

DRUGS (9)
  1. REMERON [Concomitant]
     Dosage: 15 MG, DAILY
  2. ZANTAC [Concomitant]
     Dosage: UNK UKN, UNK
  3. MULTI-VITAMIN [Concomitant]
     Dosage: UNK UKN, UNK
  4. VORICONAZOLE [Concomitant]
     Dosage: 200 MG, DAILY
  5. ZOFRAN [Concomitant]
     Dosage: 4 MG, DAILY
  6. BACTRIM [Concomitant]
     Dosage: UNK UKN, UNK
  7. TASIGNA [Suspect]
     Dosage: UNK UKN, UNK
     Dates: end: 20110811
  8. SYNTHROID [Concomitant]
     Dosage: 150 UG, DAILY
  9. KEPPRA [Concomitant]
     Dosage: 1000 MG, DAILY

REACTIONS (1)
  - DEATH [None]
